FAERS Safety Report 10479766 (Version 2)
Quarter: 2014Q3

REPORT INFORMATION
  Report Type: Report from Study
  Country: US (occurrence: US)
  Receive Date: 20140927
  Receipt Date: 20140927
  Transmission Date: 20150326
  Serious: Yes (Other)
  Sender: FDA-Public Use
  Company Number: US-ALEXION PHARMACEUTICALS INC-A201102483

PATIENT
  Age: 0 Year
  Sex: Male

DRUGS (1)
  1. SOLIRIS [Suspect]
     Active Substance: ECULIZUMAB
     Indication: PAROXYSMAL NOCTURNAL HAEMOGLOBINURIA
     Dosage: UNK
     Route: 042
     Dates: start: 20110222

REACTIONS (16)
  - Diarrhoea [Recovered/Resolved]
  - Haematocrit decreased [Unknown]
  - Dyspnoea [Unknown]
  - Chest pain [Recovered/Resolved]
  - Infection [Unknown]
  - Erectile dysfunction [Unknown]
  - Vomiting [Recovered/Resolved]
  - Fatigue [Unknown]
  - Pyrexia [Unknown]
  - Quality of life decreased [Unknown]
  - Blood lactate dehydrogenase increased [Unknown]
  - Chromaturia [Recovering/Resolving]
  - Nail injury [Unknown]
  - Abdominal pain [Unknown]
  - Asthenia [Unknown]
  - Nausea [Recovered/Resolved]

NARRATIVE: CASE EVENT DATE: 20110322
